FAERS Safety Report 22079421 (Version 1)
Quarter: 2023Q1

REPORT INFORMATION
  Report Type: Report from Study
  Country: US (occurrence: US)
  Receive Date: 20230309
  Receipt Date: 20230309
  Transmission Date: 20230418
  Serious: Yes (Death, Other)
  Sender: FDA-Public Use
  Company Number: US-Ipsen Biopharmaceuticals, Inc.-2023-02573

PATIENT
  Sex: Male

DRUGS (1)
  1. DYSPORT [Suspect]
     Active Substance: ABOBOTULINUMTOXINA
     Indication: Muscle spasticity
     Dosage: 100-200 UNITS PER MUSCLE IN UPPER AND LOWER LIMB EVERY 12 WEEKS (1000-1500U OF DYSPORT)
     Route: 065

REACTIONS (2)
  - Death [Fatal]
  - Hospice care [Unknown]
